FAERS Safety Report 7636366-9 (Version None)
Quarter: 2011Q3

REPORT INFORMATION
  Report Type: 
  Country: None (occurrence: None)
  Receive Date: 20110726
  Receipt Date: 20110719
  Transmission Date: 20111222
  Serious: Yes (Hospitalization)
  Sender: FDA-Public Use
  Company Number: JP-GLAXOSMITHKLINE-B0730479A

PATIENT
  Sex: Female

DRUGS (2)
  1. LOXONIN [Concomitant]
     Indication: PAIN
     Route: 048
     Dates: start: 20110624, end: 20110626
  2. VALTREX [Suspect]
     Indication: HERPES ZOSTER
     Dosage: 3000MG PER DAY
     Route: 048
     Dates: start: 20110624, end: 20110626

REACTIONS (2)
  - DELIRIUM [None]
  - RENAL IMPAIRMENT [None]
